FAERS Safety Report 22277409 (Version 1)
Quarter: 2023Q2

REPORT INFORMATION
  Report Type: Spontaneous
  Country: CN (occurrence: CN)
  Receive Date: 20230503
  Receipt Date: 20230503
  Transmission Date: 20230722
  Serious: Yes (Hospitalization, Other)
  Sender: FDA-Public Use
  Company Number: None

PATIENT
  Age: 45 Year
  Sex: Male
  Weight: 56 kg

DRUGS (11)
  1. CYCLOPHOSPHAMIDE [Suspect]
     Active Substance: CYCLOPHOSPHAMIDE
     Indication: B-cell type acute leukaemia
     Dosage: 0.93 G, QD, D1, 5 HOUR DILUTED WITH 500 ML SODIUM CHLORIDE, INTRA PUMP INJECTION
     Route: 050
     Dates: start: 20230328, end: 20230328
  2. CYCLOPHOSPHAMIDE [Suspect]
     Active Substance: CYCLOPHOSPHAMIDE
     Indication: Acute lymphocytic leukaemia
     Dosage: 0.93 G, QD, D 15, 5 HOUR DILUTED WITH 500 ML SODIUM CHLORIDE, INTRA PUMP INJECTION
     Route: 050
     Dates: start: 20230412, end: 20230412
  3. SODIUM CHLORIDE [Suspect]
     Active Substance: SODIUM CHLORIDE
     Indication: Medication dilution
     Dosage: 500 ML, QD, D1, 5 HOUR USED TO DILUTE 0.93 G CYCLOPHOSPHAMIDE, INTRA PUMP INJECTION
     Route: 050
     Dates: start: 20230328, end: 20230328
  4. SODIUM CHLORIDE [Suspect]
     Active Substance: SODIUM CHLORIDE
     Dosage: 500 ML, QD, D15, 5 HOUR USED TO DILUTE 0.93 G CYCLOPHOSPHAMIDE, INTRA PUMP INJECTION
     Route: 050
     Dates: start: 20230412, end: 20230412
  5. SODIUM CHLORIDE [Suspect]
     Active Substance: SODIUM CHLORIDE
     Dosage: 250 ML, QD, D1-3 USED TO DILUTE 63 MG DAUNORUBICIN
     Route: 041
     Dates: start: 20230328, end: 20230330
  6. SODIUM CHLORIDE [Suspect]
     Active Substance: SODIUM CHLORIDE
     Dosage: 250 ML, QD, D1, 2-HOUR USE TO DILUTE 2 MG VINCRISTINE, INTRA PUMP INJECTION
     Route: 050
     Dates: start: 20230328, end: 20230328
  7. SODIUM CHLORIDE [Suspect]
     Active Substance: SODIUM CHLORIDE
     Dosage: 250 ML, QD, D8, 2-HOUR USE TO DILUTE 2 MG VINCRISTINE, INTRA PUMP INJECTION
     Route: 050
     Dates: start: 20030405, end: 20030405
  8. DAUNORUBICIN HYDROCHLORIDE [Suspect]
     Active Substance: DAUNORUBICIN HYDROCHLORIDE
     Indication: B-cell type acute leukaemia
     Dosage: 63 MG, QD, D1-3 DILUTED WITH 250 ML SODIUM CHLORIDE
     Route: 041
     Dates: start: 20230328, end: 20230330
  9. DAUNORUBICIN HYDROCHLORIDE [Suspect]
     Active Substance: DAUNORUBICIN HYDROCHLORIDE
     Indication: Acute lymphocytic leukaemia
  10. VINCRISTINE SULFATE [Suspect]
     Active Substance: VINCRISTINE SULFATE
     Indication: B-cell type acute leukaemia
     Dosage: 2 MG, QD, D1, 2-HOUR DILUTED WITH 250 ML SODIUM CHLORIDE, INTRA PUMP INJECTION
     Route: 050
     Dates: start: 20230328, end: 20230328
  11. VINCRISTINE SULFATE [Suspect]
     Active Substance: VINCRISTINE SULFATE
     Indication: Acute lymphocytic leukaemia
     Dosage: 2 MG, QD, D 8, 2-HOUR DILUTED WITH 250 ML SODIUM CHLORIDE, INTRA PUMP INJECTION
     Route: 050
     Dates: start: 20230405, end: 20230405

REACTIONS (1)
  - Myelosuppression [Recovering/Resolving]

NARRATIVE: CASE EVENT DATE: 20230409
